FAERS Safety Report 13685021 (Version 1)
Quarter: 2017Q2

REPORT INFORMATION
  Report Type: Report from Study
  Country: JP (occurrence: JP)
  Receive Date: 20170623
  Receipt Date: 20170623
  Transmission Date: 20170830
  Serious: Yes (Death)
  Sender: FDA-Public Use
  Company Number: JP-PFIZER INC-2017270918

PATIENT

DRUGS (4)
  1. CARBOPLATIN. [Suspect]
     Active Substance: CARBOPLATIN
     Dosage: TWO COURSES (CONSOLIDATION CHEMOTHERAPY)
  2. PACLITAXEL. [Suspect]
     Active Substance: PACLITAXEL
     Dosage: TWO COURSES (CONSOLIDATION CHEMOTHERAPY)
  3. PACLITAXEL. [Suspect]
     Active Substance: PACLITAXEL
     Indication: NON-SMALL CELL LUNG CANCER STAGE IIIA
     Dosage: 40 MG/M2, WEEKLY FOR 5 WEEKS (NEOADJUVANT)
  4. CARBOPLATIN. [Suspect]
     Active Substance: CARBOPLATIN
     Indication: NON-SMALL CELL LUNG CANCER STAGE IIIA
     Dosage: AUC 2 FOR 5 WEEKS (NEOADJUVANT)

REACTIONS (1)
  - Bronchial fistula [Fatal]
